FAERS Safety Report 6134270-9 (Version None)
Quarter: 2009Q1

REPORT INFORMATION
  Report Type: 
  Country: None (occurrence: None)
  Receive Date: 20090325
  Receipt Date: 20090310
  Transmission Date: 20090719
  Serious: Yes (Life-Threatening, Hospitalization)
  Sender: FDA-Public Use
  Company Number: 2009S1004841

PATIENT
  Age: 77 Year
  Sex: Female

DRUGS (6)
  1. VERAPAMIL [Suspect]
     Indication: HYPERTENSION
     Dosage: 60 MG;ORAL
     Route: 048
  2. ACETYLSALICYLIC ACID (ACETYSALICYLIC ACID) [Suspect]
     Indication: AORTIC VALVE STENOSIS
     Dosage: 100 MG;ORAL
     Route: 047
     Dates: end: 20080703
  3. FALITHROM (PHENPROCOUMON) [Suspect]
     Indication: ATRIAL FIBRILLATION
     Dosage: AS NEEDED;ORAL
     Route: 048
  4. DIGITOXIN [Concomitant]
  5. ARELIX [Concomitant]
  6. LISINOPRIL [Concomitant]

REACTIONS (4)
  - DRUG INTERACTION [None]
  - GASTRIC ULCER HELICOBACTER [None]
  - GASTROINTESTINAL HAEMORRHAGE [None]
  - HELICOBACTER GASTRITIS [None]
